FAERS Safety Report 8049012 (Version 2)
Quarter: 2013Q2

REPORT INFORMATION
  Report Type: Spontaneous
  Country: US (occurrence: US)
  Receive Date: 20110722
  Receipt Date: 20130425
  Transmission Date: 20140414
  Serious: No
  Sender: FDA-Public Use
  Company Number: US-BAYER-2011-025368

PATIENT
  Age: 29 Year
  Sex: Female

DRUGS (7)
  1. BETASERON [Suspect]
     Indication: PRODUCT USED FOR UNKNOWN INDICATION
     Dosage: 0.25 MG, QOD
     Route: 058
  2. BETASERON [Suspect]
     Indication: PRODUCT USED FOR UNKNOWN INDICATION
     Dosage: 0.75 ML, QOD
     Route: 058
  3. EVENING PRIMROSE OIL [Concomitant]
  4. FISH OIL [Concomitant]
  5. VITAMIN D [Concomitant]
  6. COQ10 [Concomitant]
  7. WOMENS ULTRA MEGA [Concomitant]
     Dosage: ONE TABLET, QD

REACTIONS (5)
  - Injection site pain [Unknown]
  - Injection site erythema [Unknown]
  - Injection site discomfort [Unknown]
  - White blood cell count decreased [Unknown]
  - Haemoglobin decreased [None]
